FAERS Safety Report 25131453 (Version 1)
Quarter: 2025Q1

REPORT INFORMATION
  Report Type: Spontaneous
  Country: US (occurrence: US)
  Receive Date: 20250327
  Receipt Date: 20250327
  Transmission Date: 20250408
  Serious: No
  Sender: PFIZER
  Company Number: US-PFIZER INC-PV202500036255

PATIENT
  Age: 53 Year
  Sex: Female

DRUGS (1)
  1. DUAVEE [Suspect]
     Active Substance: BAZEDOXIFENE ACETATE\ESTROGENS, CONJUGATED
     Dosage: 1 TAB DAILY
     Route: 048
     Dates: start: 20250224, end: 20250317

REACTIONS (1)
  - Vaginal haemorrhage [Recovering/Resolving]
